FAERS Safety Report 7415910-0 (Version None)
Quarter: 2011Q2

REPORT INFORMATION
  Report Type: 
  Country: None (occurrence: None)
  Receive Date: 20110414
  Receipt Date: 20110405
  Transmission Date: 20111010
  Serious: Yes (Other)
  Sender: FDA-Public Use
  Company Number: US-CEPHALON-2011001669

PATIENT
  Sex: Male
  Weight: 77 kg

DRUGS (2)
  1. AMRIX [Suspect]
     Indication: MUSCLE SPASMS
     Route: 048
     Dates: start: 20110315, end: 20110317
  2. FLOMAX [Concomitant]

REACTIONS (4)
  - HYPERHIDROSIS [None]
  - LOSS OF CONSCIOUSNESS [None]
  - BACK INJURY [None]
  - FEELING ABNORMAL [None]
